FAERS Safety Report 4730617-6 (Version None)
Quarter: 2005Q3

REPORT INFORMATION
  Report Type: 
  Country: None (occurrence: None)
  Receive Date: 20050725
  Receipt Date: 20050311
  Transmission Date: 20060218
  Serious: No
  Sender: FDA-Public Use
  Company Number: USA050392622

PATIENT
  Age: 37 Year
  Sex: Male
  Weight: 71 kg

DRUGS (1)
  1. STRATTERA [Suspect]
     Dates: start: 20041216

REACTIONS (4)
  - EJACULATION DISORDER [None]
  - ORCHITIS [None]
  - SCROTAL DISORDER [None]
  - URINARY HESITATION [None]
